FAERS Safety Report 24587487 (Version 1)
Quarter: 2024Q4

REPORT INFORMATION
  Report Type: Spontaneous
  Country: CA (occurrence: CA)
  Receive Date: 20241107
  Receipt Date: 20241107
  Transmission Date: 20250115
  Serious: Yes (Other)
  Sender: ACCORD
  Company Number: None

PATIENT
  Age: 73 Year
  Sex: Female
  Weight: 45 kg

DRUGS (9)
  1. APIXABAN [Suspect]
     Active Substance: APIXABAN
     Indication: Deep vein thrombosis
     Dosage: 2 EVERY 1 DAYS
     Route: 048
  2. CALCIUM CARBONATE [Concomitant]
     Active Substance: CALCIUM CARBONATE
  3. GLICLAZIDE [Concomitant]
     Active Substance: GLICLAZIDE
  4. LORAZEPAM [Concomitant]
     Active Substance: LORAZEPAM
     Route: 065
  5. NADOLOL [Concomitant]
     Active Substance: NADOLOL
  6. PANTOPRAZOLE [Concomitant]
     Active Substance: PANTOPRAZOLE
  7. SERTRALINE [Concomitant]
     Active Substance: SERTRALINE HYDROCHLORIDE
  8. SITAGLIPTIN [Concomitant]
     Active Substance: SITAGLIPTIN
  9. VORICONAZOLE [Concomitant]
     Active Substance: VORICONAZOLE

REACTIONS (3)
  - Drug interaction [Recovering/Resolving]
  - Haemorrhage [Recovering/Resolving]
  - Stoma site haemorrhage [Recovering/Resolving]
